FAERS Safety Report 23703700 (Version 1)
Quarter: 2024Q2

REPORT INFORMATION
  Report Type: Spontaneous
  Country: CA (occurrence: CA)
  Receive Date: 20240403
  Receipt Date: 20240403
  Transmission Date: 20240715
  Serious: Yes (Hospitalization, Other)
  Sender: FDA-Public Use
  Company Number: CA-Harrow Eye-2155198

PATIENT
  Sex: Male

DRUGS (12)
  1. VIGAMOX [Suspect]
     Active Substance: MOXIFLOXACIN HYDROCHLORIDE
     Indication: Mycobacterial infection
     Route: 047
     Dates: start: 20230619
  2. CLOFAZIMINE [Suspect]
     Active Substance: CLOFAZIMINE
     Dates: start: 20230619
  3. SULFAMETHOXAZOLE\TRIMETHOPRIM [Suspect]
     Active Substance: SULFAMETHOXAZOLE\TRIMETHOPRIM
     Dates: start: 20230619
  4. IMIPENEM [Suspect]
     Active Substance: IMIPENEM
     Dates: start: 20230619
  5. CEFOXITIN [Suspect]
     Active Substance: CEFOXITIN SODIUM
     Dates: start: 20230717
  6. DOXYCYCLINE [Suspect]
     Active Substance: DOXYCYCLINE
     Dates: start: 20230619
  7. AMIKACIN [Suspect]
     Active Substance: AMIKACIN
     Dates: start: 20230619
  8. AZITHROMYCIN [Suspect]
     Active Substance: AZITHROMYCIN
     Route: 048
     Dates: start: 20230619, end: 20230710
  9. TIGECYCLINE [Suspect]
     Active Substance: TIGECYCLINE
     Route: 042
     Dates: start: 20230619, end: 20230717
  10. CLARITHROMYCIN [Suspect]
     Active Substance: CLARITHROMYCIN
     Dates: start: 20230619
  11. CIPROFLOXACIN [Suspect]
     Active Substance: CIPROFLOXACIN
     Dates: start: 20230619
  12. LINEZOLID [Suspect]
     Active Substance: LINEZOLID
     Route: 048
     Dates: start: 20230619, end: 20230717

REACTIONS (3)
  - Lactic acidosis [Unknown]
  - Nausea [Unknown]
  - Thrombocytopenia [Unknown]

NARRATIVE: CASE EVENT DATE: 20230703
